FAERS Safety Report 8281802-0 (Version None)
Quarter: 2012Q2

REPORT INFORMATION
  Report Type: 
  Country: None (occurrence: None)
  Receive Date: 20120413
  Receipt Date: 20120404
  Transmission Date: 20120825
  Serious: Yes (Other)
  Sender: FDA-Public Use
  Company Number: PHHY2012AU028729

PATIENT
  Sex: Female

DRUGS (1)
  1. CARBAMAZEPINE [Suspect]

REACTIONS (2)
  - ABORTION [None]
  - MATERNAL EXPOSURE DURING PREGNANCY [None]
